FAERS Safety Report 7826435-2 (Version None)
Quarter: 2011Q4

REPORT INFORMATION
  Report Type: 
  Country: None (occurrence: None)
  Receive Date: 20111020
  Receipt Date: 20111013
  Transmission Date: 20120403
  Serious: Yes (Other)
  Sender: FDA-Public Use
  Company Number: US-AMGEN-USASP2011043209

PATIENT
  Age: 61 Year
  Sex: Female

DRUGS (1)
  1. ENBREL [Suspect]
     Indication: RHEUMATOID ARTHRITIS
     Dosage: UNK
     Dates: start: 20110708

REACTIONS (13)
  - HEADACHE [None]
  - OROPHARYNGEAL PAIN [None]
  - NASAL CONGESTION [None]
  - COUGH [None]
  - DYSPHONIA [None]
  - DYSPNOEA [None]
  - NASOPHARYNGITIS [None]
  - CORONARY ARTERY DILATATION [None]
  - INJECTION SITE PAIN [None]
  - LUNG DISORDER [None]
  - CHEST DISCOMFORT [None]
  - MALAISE [None]
  - DRUG INEFFECTIVE [None]
